FAERS Safety Report 7945903-6 (Version None)
Quarter: 2011Q4

REPORT INFORMATION
  Report Type: 
  Country: None (occurrence: None)
  Receive Date: 20111123
  Receipt Date: 20111111
  Transmission Date: 20120403
  Serious: Yes (Other)
  Sender: FDA-Public Use
  Company Number: 2011SP053086

PATIENT
  Age: 64 Year
  Sex: Male
  Weight: 122 kg

DRUGS (3)
  1. METFORMIN HCL [Concomitant]
  2. NASONEX [Suspect]
     Indication: RHINITIS ALLERGIC
     Dosage: BID;NAS ; QD;NAS
     Route: 045
     Dates: start: 20111108
  3. ENALAPRIL MALEATE [Concomitant]

REACTIONS (2)
  - BLOOD PRESSURE INCREASED [None]
  - MALAISE [None]
